FAERS Safety Report 8243666 (Version 15)
Quarter: 2014Q1

REPORT INFORMATION
  Report Type: Spontaneous
  Country: US (occurrence: US)
  Receive Date: 20111114
  Receipt Date: 20140225
  Transmission Date: 20141002
  Serious: Yes (Hospitalization, Congenital Anomaly, Other)
  Sender: FDA-Public Use
  Company Number: US-PFIZER INC-2011235573

PATIENT
  Sex: Male
  Weight: 3 kg

DRUGS (12)
  1. ZOLOFT [Suspect]
     Indication: DEPRESSION
     Dosage: 50 MG, 1X/DAY AT BED TIME
     Route: 064
     Dates: start: 20020705
  2. ZOLOFT [Suspect]
     Indication: POST-TRAUMATIC STRESS DISORDER
     Dosage: 75 MG, 1X/DAY (50MG 1AND HALF TABLETS AT BED TIME)
     Route: 064
     Dates: start: 20030503
  3. ZOLOFT [Suspect]
     Indication: ANXIETY
     Dosage: 100 MG, 1X/DAY (AT BED TIME)
     Route: 064
     Dates: start: 20030607
  4. ZOLOFT [Suspect]
     Indication: ADJUSTMENT DISORDER
  5. PRENATAL VITAMINS [Concomitant]
     Dosage: UNK
     Route: 064
  6. ALUMINUM HYDROXIDE\DIMETHICONE\MAGNESIUM HYDROXIDE [Concomitant]
     Dosage: UNK, EVERY 6 HOURS
     Route: 064
     Dates: start: 20040829
  7. DEXAMETHASONE SODIUM PHOSPHATE [Concomitant]
     Dosage: UNK, EVERY 12HOURS
     Route: 064
     Dates: start: 20040829, end: 20040831
  8. PRENATAL PLUS [Concomitant]
     Indication: PREGNANCY
     Dosage: UNK,
     Route: 064
     Dates: start: 2004
  9. FERROUS SULFATE [Concomitant]
     Indication: MINERAL SUPPLEMENTATION
     Dosage: UNK,
     Route: 064
     Dates: start: 2004
  10. TRAZODONE [Concomitant]
     Indication: POST-TRAUMATIC STRESS DISORDER
     Dosage: 50 - 100MG
     Route: 064
     Dates: start: 2002, end: 20040213
  11. TRAZODONE [Concomitant]
     Indication: ANXIETY
  12. TRAZODONE [Concomitant]
     Indication: ADJUSTMENT DISORDER

REACTIONS (27)
  - Maternal exposure timing unspecified [Recovered/Resolved]
  - Truncus arteriosus persistent [Unknown]
  - Interruption of aortic arch [Unknown]
  - Tricuspid valve incompetence [Unknown]
  - Mitral valve incompetence [Unknown]
  - Patent ductus arteriosus [Unknown]
  - Ventricular septal defect [Unknown]
  - Pneumonia aspiration [Unknown]
  - Respiratory tract malformation [Unknown]
  - Pulmonary vascular disorder [Unknown]
  - Laryngomalacia [Unknown]
  - Vocal cord paralysis [Recovered/Resolved]
  - Atrial septal defect [Unknown]
  - Right ventricle outflow tract obstruction [Unknown]
  - Aortic valve incompetence [Unknown]
  - Congenital aortic valve incompetence [Unknown]
  - Neonatal respiratory distress syndrome [Recovered/Resolved]
  - Sepsis neonatal [Unknown]
  - Pneumopericardium [Unknown]
  - Pulmonary artery stenosis congenital [Unknown]
  - Pulmonary valve incompetence [Unknown]
  - Right ventricular hypertrophy [Unknown]
  - Dilatation ventricular [Unknown]
  - Pigmentation disorder [Unknown]
  - Cardiomegaly [Unknown]
  - Abnormal behaviour [Unknown]
  - Developmental delay [Unknown]
